FAERS Safety Report 17681772 (Version 4)
Quarter: 2020Q3

REPORT INFORMATION
  Report Type: Report from Study
  Country: IT (occurrence: IT)
  Receive Date: 20200417
  Receipt Date: 20200929
  Transmission Date: 20201102
  Serious: Yes (Hospitalization)
  Sender: FDA-Public Use
  Company Number: IT-EXELIXIS-XL18420028893

PATIENT
  Age: 55 Year
  Sex: Female
  Weight: 51 kg

DRUGS (9)
  1. XL184 [Suspect]
     Active Substance: CABOZANTINIB
     Dosage: 60 MG, QD
     Route: 048
     Dates: start: 20200417
  2. ALKALOS [Concomitant]
  3. LYRICA [Concomitant]
     Active Substance: PREGABALIN
  4. AMLODIPINE [Concomitant]
     Active Substance: AMLODIPINE BESYLATE
  5. PANTOPRAZOLO [Concomitant]
     Active Substance: PANTOPRAZOLE SODIUM
  6. XL184 [Suspect]
     Active Substance: CABOZANTINIB
     Indication: THYROID CANCER
     Dosage: 60 MG, QD
     Route: 048
     Dates: start: 20191211
  7. EUTIROX [Concomitant]
     Active Substance: LEVOTHYROXINE SODIUM
  8. GIANT [Concomitant]
     Active Substance: AMLODIPINE BESYLATE\OLMESARTAN MEDOXOMIL
  9. ROCALTROL [Concomitant]
     Active Substance: CALCITRIOL

REACTIONS (1)
  - Cholelithiasis [Recovered/Resolved]

NARRATIVE: CASE EVENT DATE: 20200408
